FAERS Safety Report 16355655 (Version 2)
Quarter: 2019Q3

REPORT INFORMATION
  Report Type: Spontaneous
  Country: GB (occurrence: GB)
  Receive Date: 20190525
  Receipt Date: 20190712
  Transmission Date: 20191004
  Serious: Yes (Other)
  Sender: FDA-Public Use
  Company Number: PHHY2019GB117981

PATIENT
  Age: 77 Year
  Sex: Female
  Weight: 57.15 kg

DRUGS (4)
  1. HYRIMOZ [Suspect]
     Active Substance: ADALIMUMAB-ADAZ
     Indication: RHEUMATOID ARTHRITIS
     Dosage: 40 MG, UNK
     Route: 051
     Dates: start: 20180212, end: 20180409
  2. HYRIMOZ [Suspect]
     Active Substance: ADALIMUMAB-ADAZ
     Dosage: 40 MG, Q2W
     Route: 058
     Dates: start: 201901, end: 20190501
  3. FOLIC ACID. [Concomitant]
     Active Substance: FOLIC ACID
     Indication: PRODUCT USED FOR UNKNOWN INDICATION
     Dosage: 5 MG, QW (STARTED PRIOR TO 2007)
     Route: 048
  4. METHOTREXATE. [Concomitant]
     Active Substance: METHOTREXATE
     Indication: RHEUMATOID ARTHRITIS
     Dosage: 10 MG, QW (STARTED PRIOR TO 2007)
     Route: 048

REACTIONS (13)
  - Product substitution issue [Unknown]
  - Dyspnoea [Not Recovered/Not Resolved]
  - Blood urine present [Not Recovered/Not Resolved]
  - Vaginal haemorrhage [Recovering/Resolving]
  - Anxiety [Recovering/Resolving]
  - Urinary tract infection [Recovering/Resolving]
  - Night sweats [Not Recovered/Not Resolved]
  - Micturition urgency [Unknown]
  - Fatigue [Not Recovered/Not Resolved]
  - Decreased appetite [Not Recovered/Not Resolved]
  - Dyspnoea [Recovering/Resolving]
  - Chest discomfort [Not Recovered/Not Resolved]
  - Nausea [Recovering/Resolving]

NARRATIVE: CASE EVENT DATE: 20180226
